FAERS Safety Report 11000283 (Version 1)
Quarter: 2015Q2

REPORT INFORMATION
  Report Type: Spontaneous
  Country: US (occurrence: US)
  Receive Date: 20150408
  Receipt Date: 20150408
  Transmission Date: 20150821
  Serious: No
  Sender: FDA-Public Use
  Company Number: US-SA-2014SA112861

PATIENT
  Age: 9 Year
  Sex: Male
  Weight: 54.43 kg

DRUGS (1)
  1. ALLEGRA [Suspect]
     Active Substance: FEXOFENADINE HYDROCHLORIDE
     Indication: SEASONAL ALLERGY
     Dosage: PRODUCT STARTED ONE YEAR AGO.
     Route: 048

REACTIONS (2)
  - Condition aggravated [Unknown]
  - Dyspepsia [Not Recovered/Not Resolved]
